FAERS Safety Report 11179083 (Version 25)
Quarter: 2021Q4

REPORT INFORMATION
  Report Type: Spontaneous
  Country: US (occurrence: US)
  Receive Date: 20150610
  Receipt Date: 20211125
  Transmission Date: 20220303
  Serious: Yes (Hospitalization, Other)
  Sender: FDA-Public Use
  Company Number: US-PFIZER INC-2015188607

PATIENT
  Age: 70 Year
  Sex: Female
  Weight: 86 kg

DRUGS (5)
  1. CADUET [Suspect]
     Active Substance: AMLODIPINE BESYLATE\ATORVASTATIN CALCIUM
     Indication: Blood pressure abnormal
     Dosage: 1 DF, 1X/DAY (AMLODIPINE BESILATE 10 MG /ATORVASTATIN CALCIUM 40 MG)
     Route: 048
  2. CADUET [Suspect]
     Active Substance: AMLODIPINE BESYLATE\ATORVASTATIN CALCIUM
     Indication: Blood cholesterol increased
     Dosage: UNK, 1X/DAY (AMLODIPINE BESILATE 5 MG /ATORVASTATIN CALCIUM 10 MG)
  3. CINNAMON [Concomitant]
     Active Substance: CINNAMON
     Dosage: 500 MG
  4. VITAMIN C [Concomitant]
     Active Substance: ASCORBIC ACID
     Dosage: 500 MG
  5. VITAMIN D3 [Concomitant]
     Active Substance: CHOLECALCIFEROL
     Dosage: 2000 IU

REACTIONS (27)
  - Epistaxis [Unknown]
  - Cerebrovascular accident [Unknown]
  - Cardiac valve disease [Unknown]
  - Device breakage [Unknown]
  - Drug dependence [Unknown]
  - Dehydration [Unknown]
  - Therapeutic product effect incomplete [Unknown]
  - Product dispensing error [Unknown]
  - Incorrect dose administered [Unknown]
  - Product prescribing error [Unknown]
  - Product dose omission issue [Unknown]
  - Peripheral swelling [Recovered/Resolved]
  - Stress [Unknown]
  - Anxiety [Unknown]
  - Asthenia [Unknown]
  - Renal disorder [Unknown]
  - Malaise [Unknown]
  - Nervousness [Unknown]
  - Eye disorder [Unknown]
  - Dyslexia [Unknown]
  - Panic reaction [Unknown]
  - Fall [Unknown]
  - Mental disorder [Unknown]
  - Chest pain [Unknown]
  - Dizziness [Unknown]
  - Hypersensitivity [Unknown]
  - Confusional state [Unknown]

NARRATIVE: CASE EVENT DATE: 20150528
